FAERS Safety Report 9986176 (Version 1)
Quarter: 2014Q1

REPORT INFORMATION
  Report Type: Report from Study
  Country: US (occurrence: US)
  Receive Date: 20140307
  Receipt Date: 20140307
  Transmission Date: 20141002
  Serious: Yes (Other)
  Sender: FDA-Public Use
  Company Number: US-ABBVIE-14P-163-1208901-00

PATIENT
  Sex: Male

DRUGS (3)
  1. HUMIRA [Suspect]
     Indication: CROHN^S DISEASE
     Dates: start: 2010
  2. HUMIRA [Suspect]
     Dates: start: 20140220
  3. BYSTOLIC [Concomitant]
     Indication: BLOOD PRESSURE

REACTIONS (3)
  - Intestinal obstruction [Recovered/Resolved]
  - Wrong technique in drug usage process [Unknown]
  - Injection site pain [Unknown]
